FAERS Safety Report 13426627 (Version 2)
Quarter: 2019Q3

REPORT INFORMATION
  Report Type: Spontaneous
  Country: US (occurrence: US)
  Receive Date: 20170411
  Receipt Date: 20190913
  Transmission Date: 20191004
  Serious: Yes (Other)
  Sender: FDA-Public Use
  Company Number: US-TAKEDA-2017MPI003107

PATIENT
  Age: 72 Year
  Sex: Male
  Weight: 69.84 kg

DRUGS (1)
  1. NINLARO [Suspect]
     Active Substance: IXAZOMIB CITRATE
     Indication: PLASMA CELL MYELOMA
     Dosage: 3 MG, UNK
     Route: 048
     Dates: start: 20170310

REACTIONS (9)
  - Fatigue [Unknown]
  - Balance disorder [Unknown]
  - Off label use [Unknown]
  - Asthenia [Unknown]
  - Urticaria [Unknown]
  - Neuropathy peripheral [Unknown]
  - Rash [Unknown]
  - Myalgia [Unknown]
  - Confusional state [Unknown]

NARRATIVE: CASE EVENT DATE: 20190907
